FAERS Safety Report 6040872-0 (Version None)
Quarter: 2009Q1

REPORT INFORMATION
  Report Type: 
  Country: None (occurrence: None)
  Receive Date: 20090116
  Receipt Date: 20080616
  Transmission Date: 20090719
  Serious: No
  Sender: FDA-Public Use
  Company Number: US-BRISTOL-MYERS SQUIBB COMPANY-14230213

PATIENT
  Age: 29 Year
  Sex: Male
  Weight: 79 kg

DRUGS (2)
  1. ABILIFY [Suspect]
     Indication: SCHIZOAFFECTIVE DISORDER
     Dosage: PRESENT DOSE 30MG/DAY,RECEIVED A LOWER DOSE A COUPLE OF YRS AGO.DURATION:5-6YRS AGO.
  2. VITAMIN B [Concomitant]

REACTIONS (1)
  - MUSCLE SPASMS [None]
